FAERS Safety Report 5503769-8 (Version None)
Quarter: 2007Q4

REPORT INFORMATION
  Report Type: 
  Country: None (occurrence: None)
  Receive Date: 20071030
  Receipt Date: 20070703
  Transmission Date: 20080405
  Serious: No
  Sender: FDA-Public Use
  Company Number: 265294

PATIENT
  Age: 60 Year
  Sex: Male

DRUGS (2)
  1. LEVEMIR [Suspect]
     Indication: INSULIN-REQUIRING TYPE II DIABETES MELLITUS
     Dosage: 30 U, QD, SUBCUTANEOUS
     Route: 058
     Dates: start: 20070605
  2. GLUCOPHAGE /00082701/ (METFORMIN) [Concomitant]

REACTIONS (6)
  - ASTHENIA [None]
  - HYPERHIDROSIS [None]
  - INJECTION SITE ERYTHEMA [None]
  - INJECTION SITE PRURITUS [None]
  - INJECTION SITE RASH [None]
  - TREMOR [None]
